FAERS Safety Report 13672468 (Version 1)
Quarter: 2017Q2

REPORT INFORMATION
  Report Type: Spontaneous
  Country: AU (occurrence: AU)
  Receive Date: 20170620
  Receipt Date: 20170620
  Transmission Date: 20170830
  Serious: Yes (Other)
  Sender: FDA-Public Use
  Company Number: PHHY2017AU087007

PATIENT
  Sex: Male

DRUGS (6)
  1. CLOZAPINE. [Suspect]
     Active Substance: CLOZAPINE
     Indication: PRODUCT USED FOR UNKNOWN INDICATION
     Route: 065
  2. OXAZEPAM. [Suspect]
     Active Substance: OXAZEPAM
     Indication: PRODUCT USED FOR UNKNOWN INDICATION
     Route: 065
  3. AMISULPRIDE [Suspect]
     Active Substance: AMISULPRIDE
     Indication: PRODUCT USED FOR UNKNOWN INDICATION
     Route: 065
  4. LITHIUM CARBONATE. [Suspect]
     Active Substance: LITHIUM CARBONATE
     Indication: PRODUCT USED FOR UNKNOWN INDICATION
     Route: 065
  5. PROPRANOLOL [Suspect]
     Active Substance: PROPRANOLOL HYDROCHLORIDE
     Indication: PRODUCT USED FOR UNKNOWN INDICATION
     Route: 065
  6. PANTOPRAZOLE [Suspect]
     Active Substance: PANTOPRAZOLE
     Indication: PRODUCT USED FOR UNKNOWN INDICATION
     Route: 065

REACTIONS (20)
  - Red blood cell count decreased [Unknown]
  - Blood pressure fluctuation [Unknown]
  - Mitral valve incompetence [Unknown]
  - Pain [Unknown]
  - Blood osmolarity decreased [Unknown]
  - Antipsychotic drug level decreased [Unknown]
  - Corneal infection [Unknown]
  - Myocarditis [Unknown]
  - Blood prolactin increased [Unknown]
  - Left ventricular dysfunction [Unknown]
  - Tricuspid valve incompetence [Unknown]
  - Schizophrenia [Unknown]
  - Dyslipidaemia [Unknown]
  - Left atrial dilatation [Unknown]
  - Chest pain [Unknown]
  - Sinus bradycardia [Unknown]
  - Aggression [Unknown]
  - Xanthelasma [Unknown]
  - Dysgeusia [Unknown]
  - Electrocardiogram abnormal [Unknown]
